FAERS Safety Report 19052461 (Version 2)
Quarter: 2021Q1

REPORT INFORMATION
  Report Type: Spontaneous
  Country: RU (occurrence: RU)
  Receive Date: 20210324
  Receipt Date: 20210330
  Transmission Date: 20210420
  Serious: Yes (Other)
  Sender: FDA-Public Use
  Company Number: RU-ALK-ABELLO A/S-2021AA000988

PATIENT

DRUGS (3)
  1. GRAZAX [Suspect]
     Active Substance: PHLEUM PRATENSE POLLEN
     Indication: ASTHMA
     Dosage: UNK
     Dates: start: 2021
  2. SYMBICORT [Concomitant]
     Active Substance: BUDESONIDE\FORMOTEROL FUMARATE DIHYDRATE
     Dosage: 80+4.5, QD
  3. GRAZAX [Suspect]
     Active Substance: PHLEUM PRATENSE POLLEN
     Indication: CONJUNCTIVITIS ALLERGIC

REACTIONS (9)
  - Nausea [Recovered/Resolved]
  - Asthenia [Recovered/Resolved]
  - Chills [Recovered/Resolved]
  - Hypoaesthesia [Recovered/Resolved]
  - Chest discomfort [Recovered/Resolved]
  - Somnolence [Recovered/Resolved]
  - Blood pressure systolic abnormal [Unknown]
  - Dyspnoea [Recovered/Resolved]
  - Muscle twitching [Recovered/Resolved]

NARRATIVE: CASE EVENT DATE: 2021
